FAERS Safety Report 9213713 (Version 3)
Quarter: 2013Q2

REPORT INFORMATION
  Report Type: Spontaneous
  Country: US (occurrence: US)
  Receive Date: 20130405
  Receipt Date: 20130528
  Transmission Date: 20140414
  Serious: Yes (Death)
  Sender: FDA-Public Use
  Company Number: US-AMGEN-USASP2013022514

PATIENT
  Sex: Female

DRUGS (21)
  1. PROCRIT [Suspect]
     Indication: PRODUCT USED FOR UNKNOWN INDICATION
     Dosage: UNK
  2. AMBIEN [Concomitant]
     Dosage: 5 MG, QD TAKE TWO TABLETS BY MOUTH EVERY DAY AT BEDTIME
     Route: 048
     Dates: start: 20111018
  3. ALBUTEROL SULFATE [Concomitant]
     Dosage: 2.5 MG/3 ML, THREE MIILILITERS BY INHALATION ROUTE EVERY SIX HRS
     Dates: start: 20111018
  4. VICODIN [Concomitant]
     Indication: PAIN
     Dosage: 5 - 500 MG TAKE ONE TABLET BY MOUTH EVERY FOUR HOURS AS NEEDED
     Route: 048
     Dates: start: 20111018
  5. TYLENOL                            /00020001/ [Concomitant]
     Indication: ARTHRITIS
     Dosage: 650 MG, TAKE TWO TABLETS BY MOUTH EVERY EIGHT HOURS
     Route: 048
     Dates: start: 20111018
  6. NYSTATIN [Concomitant]
     Dosage: 100,000 UNIT/ML, TAKE FOUR MILLILITERS BY MOUTH FOUR TIMES EVERY DAY
     Dates: start: 20111018
  7. METOPROLOL TARTRATE [Concomitant]
     Dosage: 100 MG, QD AKE ONE TABLET
     Route: 048
     Dates: start: 20111018
  8. FOLIC ACID [Concomitant]
     Dosage: 1 MG, QD
     Route: 048
     Dates: start: 20111018
  9. DIGOXIN [Concomitant]
     Dosage: 125 MUG, QD
     Route: 048
     Dates: start: 20111018
  10. BRIMONIDINE [Concomitant]
     Dosage: 0.2 %, EVERY EIGHT HOURS INTO LEFT EYE
     Route: 047
     Dates: start: 20111018
  11. ARANESP [Concomitant]
     Dosage: 60 MCG/ML, Q2WK HOLD IF HBG ABOVE 10
     Dates: start: 20111018
  12. LASIX                              /00032601/ [Concomitant]
     Dosage: 40 MG, QD
     Route: 048
     Dates: start: 20111018
  13. IRON [Concomitant]
     Dosage: 325 MG, TID
     Route: 048
     Dates: start: 20111018
  14. SENNA                              /00142201/ [Concomitant]
     Dosage: 8.6 MG, BID
     Route: 048
     Dates: start: 20111018
  15. THIAMINE HCL [Concomitant]
     Dosage: 100 MG, QD
     Route: 048
     Dates: start: 20111018
  16. MULTIVITAMINS PLUS IRON [Concomitant]
     Dosage: ONE TABLET, QD
     Route: 048
     Dates: start: 20111018
  17. LYRICA [Concomitant]
     Dosage: 50 MG, TID
     Route: 048
     Dates: start: 20111018
  18. PRAVASTATIN [Concomitant]
     Dosage: 40 MG, QD
     Route: 048
     Dates: start: 20111018
  19. OMEPRAZOLE [Concomitant]
     Dosage: 40 MG, QD BEFORE A MEAL
     Route: 048
     Dates: start: 20111018
  20. BABY ASPIRIN [Concomitant]
     Dosage: 81 MG, QD
     Route: 048
     Dates: start: 20111018
  21. NORVASC [Concomitant]
     Dosage: 5 MG, QD
     Route: 048

REACTIONS (1)
  - Myelodysplastic syndrome [Fatal]
